FAERS Safety Report 13437910 (Version 1)
Quarter: 2017Q2

REPORT INFORMATION
  Report Type: Spontaneous
  Country: US (occurrence: US)
  Receive Date: 20170412
  Receipt Date: 20170412
  Transmission Date: 20170830
  Serious: No
  Sender: FDA-Public Use
  Company Number: US-SA-2016SA087813

PATIENT
  Age: 63 Year
  Sex: Female

DRUGS (2)
  1. ALLEGRA ALLERGY [Suspect]
     Active Substance: FEXOFENADINE HYDROCHLORIDE
     Indication: SWELLING
     Dosage: PATIENT WAS ON THE 180 MG FOR OVER A YEAR NOW AND SHE WAS ONLY USING HALF
     Route: 048
  2. ALLEGRA ALLERGY [Suspect]
     Active Substance: FEXOFENADINE HYDROCHLORIDE
     Indication: ANGIOEDEMA
     Dosage: PATIENT WAS ON THE 180 MG FOR OVER A YEAR NOW AND SHE WAS ONLY USING HALF
     Route: 048

REACTIONS (2)
  - Wrong technique in product usage process [Unknown]
  - Intentional underdose [Unknown]
